FAERS Safety Report 25274250 (Version 2)
Quarter: 2025Q2

REPORT INFORMATION
  Report Type: Spontaneous
  Country: AU (occurrence: AU)
  Receive Date: 20250506
  Receipt Date: 20250621
  Transmission Date: 20250717
  Serious: No
  Sender: JAZZ
  Company Number: AU-PHARMAMAR-2025PM000034

PATIENT
  Sex: Male

DRUGS (1)
  1. ZEPZELCA [Suspect]
     Active Substance: LURBINECTEDIN
     Indication: Prostate cancer
     Dosage: 6.4 MILLIGRAM, Q3W

REACTIONS (1)
  - No adverse event [Unknown]
